FAERS Safety Report 9975131 (Version 1)
Quarter: 2014Q1

REPORT INFORMATION
  Report Type: Report from Study
  Country: US (occurrence: US)
  Receive Date: 20140306
  Receipt Date: 20140306
  Transmission Date: 20141002
  Serious: No
  Sender: FDA-Public Use
  Company Number: US-ABBVIE-13P-163-1160358-00

PATIENT
  Sex: Female

DRUGS (14)
  1. HUMIRA [Suspect]
     Indication: CROHN^S DISEASE
     Dates: start: 20130919
  2. VITAMIN B12 [Concomitant]
     Indication: SUPPLEMENTATION THERAPY
  3. CENTRUM FOR WOMEN MULTIVITAMIN [Concomitant]
     Indication: PRODUCT USED FOR UNKNOWN INDICATION
  4. BIOTIN [Concomitant]
     Indication: PRODUCT USED FOR UNKNOWN INDICATION
  5. FISH OIL [Concomitant]
     Indication: PRODUCT USED FOR UNKNOWN INDICATION
     Dosage: 1000 MG DAILY
  6. PROBIOTIC FACTOR 1 [Concomitant]
     Indication: PRODUCT USED FOR UNKNOWN INDICATION
  7. ASA [Concomitant]
     Indication: PRODUCT USED FOR UNKNOWN INDICATION
  8. TOPROL [Concomitant]
     Indication: HYPERTENSION
  9. SPIRONOLACTONE [Concomitant]
     Indication: HYPERTENSION
  10. PRILOSEC [Concomitant]
     Indication: PRODUCT USED FOR UNKNOWN INDICATION
  11. SYNTHROID [Concomitant]
     Indication: HYPOTHYROIDISM
     Dosage: .088 MG DAILY M-F AND .112 MG DAILY SAT-SUN
  12. FLEXERIL [Concomitant]
     Indication: HEADACHE
     Dosage: 2.5 MG EACH NIGHT
  13. FLEXERIL [Concomitant]
     Indication: MUSCULOSKELETAL DISCOMFORT
  14. TRAVATAN [Concomitant]
     Indication: GLAUCOMA
     Dosage: RIGHT EYE AT BEDTIME

REACTIONS (2)
  - Unevaluable event [Not Recovered/Not Resolved]
  - Injection site erythema [Not Recovered/Not Resolved]
